FAERS Safety Report 22604016 (Version 1)
Quarter: 2023Q2

REPORT INFORMATION
  Report Type: Spontaneous
  Country: CA (occurrence: CA)
  Receive Date: 20230615
  Receipt Date: 20230615
  Transmission Date: 20230721
  Serious: Yes (Death)
  Sender: FDA-Public Use
  Company Number: CA-002147023-NVSC2023CA135443

PATIENT
  Age: 70 Year
  Sex: Male

DRUGS (2)
  1. OXALIPLATIN [Suspect]
     Active Substance: OXALIPLATIN
     Indication: Product used for unknown indication
     Dosage: 1 DOSAGE FORM (THERAPY DURATION: 65.0 DAYS)
     Route: 065
  2. FLUOROURACIL SODIUM [Suspect]
     Active Substance: FLUOROURACIL SODIUM
     Indication: Product used for unknown indication
     Dosage: 1 DOSAGE FORM (THERAPY DURATION: 65.0 DAYS)
     Route: 065

REACTIONS (2)
  - Neoplasm progression [Fatal]
  - Assisted suicide [Fatal]
